FAERS Safety Report 21285431 (Version 1)
Quarter: 2022Q3

REPORT INFORMATION
  Report Type: Spontaneous
  Country: US (occurrence: None)
  Receive Date: 20220901
  Receipt Date: 20220901
  Transmission Date: 20221027
  Serious: Yes (Other)
  Sender: FDA-Public Use
  Company Number: None

PATIENT
  Age: 45 Year
  Sex: Female
  Weight: 92.53 kg

DRUGS (2)
  1. OZEMPIC [Suspect]
     Active Substance: SEMAGLUTIDE
     Indication: Type 2 diabetes mellitus
     Dosage: 1.0 MG WEEK;Y SUBCUTANEOUS?
     Route: 058
  2. Ozempic 4 mg/3 ml pen injector [Concomitant]
     Dates: start: 20220303, end: 20220901

REACTIONS (7)
  - Anxiety [None]
  - Dyspnoea [None]
  - Feeling abnormal [None]
  - Cardiac flutter [None]
  - Dizziness [None]
  - Cold sweat [None]
  - Incorrect dose administered [None]

NARRATIVE: CASE EVENT DATE: 20220901
